FAERS Safety Report 6267999-2 (Version None)
Quarter: 2009Q3

REPORT INFORMATION
  Report Type: 
  Country: None (occurrence: None)
  Receive Date: 20090713
  Receipt Date: 20090629
  Transmission Date: 20100115
  Serious: Yes (Hospitalization)
  Sender: FDA-Public Use
  Company Number: 2009-02196

PATIENT
  Age: 73 Year
  Sex: Male
  Weight: 52.2 kg

DRUGS (15)
  1. VELCADE [Suspect]
     Indication: NON-SMALL CELL LUNG CANCER
     Dosage: 1.8 MG/M2, UNK, INTRAVENOUS
     Route: 042
     Dates: start: 20090413, end: 20090527
  2. ALIMTA [Suspect]
     Indication: NON-SMALL CELL LUNG CANCER
     Dosage: 795 MG/M2, UNK, INTRAVENOUS
     Route: 042
     Dates: start: 20090413, end: 20090527
  3. VYTORIN [Concomitant]
  4. MEGACE [Concomitant]
  5. CARBIDOPA (CARBIDOPA) [Concomitant]
  6. LEVODOPA (LEVODOPA) [Concomitant]
  7. PREDNISONE [Concomitant]
  8. HYDROMET (HYDROCHLOROTHIAZIDE,METHYLDOPA) [Concomitant]
  9. FOLIC ACID [Concomitant]
  10. MUCINE [Concomitant]
  11. FLUPHANAZINE (FLYPHENAZINE) [Concomitant]
  12. DEXAMETHASONE [Concomitant]
  13. KYTRIL [Concomitant]
  14. PEPCID [Concomitant]
  15. VITAMIN B12 [Concomitant]

REACTIONS (17)
  - CONDITION AGGRAVATED [None]
  - COUGH [None]
  - DEHYDRATION [None]
  - DEPRESSION [None]
  - DIARRHOEA [None]
  - DYSGEUSIA [None]
  - DYSPHAGIA [None]
  - DYSPNOEA [None]
  - FALL [None]
  - FLAT AFFECT [None]
  - ORAL CANDIDIASIS [None]
  - PAIN [None]
  - REFLUX OESOPHAGITIS [None]
  - SCRATCH [None]
  - SEPSIS [None]
  - WEIGHT DECREASED [None]
  - WHEEZING [None]
